FAERS Safety Report 5331383-6 (Version None)
Quarter: 2007Q2

REPORT INFORMATION
  Report Type: 
  Country: None (occurrence: None)
  Receive Date: 20070522
  Receipt Date: 20070509
  Transmission Date: 20071010
  Serious: Yes (Death, Hospitalization, Other)
  Sender: FDA-Public Use
  Company Number: ES-ELI_LILLY_AND_COMPANY-ES200705004334

PATIENT
  Age: 85 Year
  Sex: Female

DRUGS (4)
  1. FORTEO [Suspect]
     Indication: OSTEOPOROSIS
     Dosage: 20 UG, DAILY (1/D)
     Route: 058
     Dates: start: 20060101, end: 20070503
  2. SIMVASTATIN [Concomitant]
     Dosage: 20 MG, UNK
  3. SIMVASTATIN [Concomitant]
     Dosage: 10 MG, UNK
  4. SEGURIL [Concomitant]
     Indication: FLUID RETENTION

REACTIONS (7)
  - CARDIAC FAILURE [None]
  - CEREBRAL INFARCTION [None]
  - FALL [None]
  - GENERALISED OEDEMA [None]
  - HUMERUS FRACTURE [None]
  - MUSCLE STRAIN [None]
  - PULMONARY OEDEMA [None]
